FAERS Safety Report 4680855-6 (Version None)
Quarter: 2005Q2

REPORT INFORMATION
  Report Type: 
  Country: None (occurrence: None)
  Receive Date: 20050603
  Receipt Date: 20050224
  Transmission Date: 20051028
  Serious: Yes (Death, Hospitalization)
  Sender: FDA-Public Use
  Company Number: US-KINGPHARMUSA00001-K200500270

PATIENT
  Sex: Female

DRUGS (5)
  1. ALTACE [Suspect]
     Indication: HYPERTENSION
     Dosage: 10 MG, QD
     Route: 048
     Dates: start: 20040701, end: 20050212
  2. ALTACE [Suspect]
     Dosage: 8 CAPSULES, 80 MG, QD
     Route: 048
     Dates: start: 20050211, end: 20050212
  3. COUMADIN [Suspect]
     Indication: ANTICOAGULANT THERAPY
     Dosage: 7.5 MG, QD
     Route: 048
     Dates: start: 20040701, end: 20050319
  4. HYDROCHLOROTHIAZIDE [Concomitant]
     Indication: HYPERTENSION
     Dosage: UNK MG, QD
     Route: 048
     Dates: end: 20050318
  5. INHIBACE ^ANDREU^ [Concomitant]
     Indication: HYPERTENSION
     Dosage: 5 MG, UNK
     Route: 048
     Dates: end: 20050212

REACTIONS (4)
  - ACCIDENTAL OVERDOSE [None]
  - CEREBRAL HAEMORRHAGE [None]
  - DRUG INTERACTION [None]
  - HYPOTENSION [None]
